FAERS Safety Report 15507455 (Version 1)
Quarter: 2018Q4

REPORT INFORMATION
  Report Type: Spontaneous
  Country: GR (occurrence: GR)
  Receive Date: 20181016
  Receipt Date: 20181016
  Transmission Date: 20190205
  Serious: Yes (Other)
  Sender: FDA-Public Use
  Company Number: GR-PFIZER INC-2018410271

PATIENT
  Age: 72 Year
  Sex: Male

DRUGS (2)
  1. LONARID-N [Concomitant]
     Indication: HEADACHE
     Dosage: UNK
  2. XANAX [Suspect]
     Active Substance: ALPRAZOLAM
     Indication: DEPRESSED MOOD
     Dosage: UNK

REACTIONS (8)
  - Drug withdrawal headache [Unknown]
  - Tachycardia [Unknown]
  - Intentional product misuse [Unknown]
  - Arrhythmia [Unknown]
  - Drug abuse [Unknown]
  - Malaise [Unknown]
  - Gait disturbance [Unknown]
  - Incorrect product administration duration [Unknown]
